FAERS Safety Report 19908443 (Version 1)
Quarter: 2021Q4

REPORT INFORMATION
  Report Type: Spontaneous
  Country: CN (occurrence: CN)
  Receive Date: 20211001
  Receipt Date: 20211001
  Transmission Date: 20220303
  Serious: Yes (Hospitalization, Disabling, Other)
  Sender: FDA-Public Use
  Company Number: CN-PFIZER INC-202101259901

PATIENT
  Age: 40 Year
  Sex: Female
  Weight: 51 kg

DRUGS (1)
  1. METHOTREXATE [Suspect]
     Active Substance: METHOTREXATE
     Indication: Abortion induced
     Dosage: 20 MG, 1X/DAY
     Route: 042
     Dates: start: 20210908, end: 20210912

REACTIONS (15)
  - Drug-induced liver injury [Recovering/Resolving]
  - Myelosuppression [Recovering/Resolving]
  - Drug eruption [Recovering/Resolving]
  - Dysphagia [Unknown]
  - Mouth ulceration [Not Recovered/Not Resolved]
  - Sensation of foreign body [Unknown]
  - Swelling [Unknown]
  - Oropharyngeal pain [Unknown]
  - Eating disorder [Unknown]
  - Pyrexia [Recovered/Resolved]
  - Swelling face [Not Recovered/Not Resolved]
  - Discomfort [Unknown]
  - Abdominal discomfort [Unknown]
  - Diarrhoea [Recovered/Resolved]
  - Off label use [Unknown]

NARRATIVE: CASE EVENT DATE: 20210908
